FAERS Safety Report 8004631-1 (Version None)
Quarter: 2011Q4

REPORT INFORMATION
  Report Type: 
  Country: None (occurrence: None)
  Receive Date: 20111223
  Receipt Date: 20111214
  Transmission Date: 20120403
  Serious: Yes (Other)
  Sender: FDA-Public Use
  Company Number: FI-JNJFOC-20111103876

PATIENT
  Sex: Female

DRUGS (1)
  1. REMICADE [Suspect]
     Indication: ANKYLOSING SPONDYLITIS
     Dosage: 14 DOSES TOTAL
     Route: 042
     Dates: start: 20111213

REACTIONS (3)
  - LYMPHANGITIS [None]
  - VASODILATATION [None]
  - CONTRAINDICATION TO VACCINATION [None]
